FAERS Safety Report 10142921 (Version 1)
Quarter: 2014Q2

REPORT INFORMATION
  Report Type: Spontaneous
  Country: US (occurrence: None)
  Receive Date: 20140428
  Receipt Date: 20140428
  Transmission Date: 20141212
  Serious: Yes (Hospitalization)
  Sender: FDA-Public Use
  Company Number: None

PATIENT
  Age: 71 Year
  Sex: Female

DRUGS (1)
  1. AFINITOR 5MG NOVARTIS [Suspect]
     Indication: RENAL CANCER
     Route: 048
     Dates: start: 20140320

REACTIONS (1)
  - Mouth ulceration [None]
